FAERS Safety Report 9994325 (Version 2)
Quarter: 2014Q1

REPORT INFORMATION
  Report Type: Report from Study
  Country: US (occurrence: US)
  Receive Date: 20140311
  Receipt Date: 20140320
  Transmission Date: 20141002
  Serious: Yes (Hospitalization)
  Sender: FDA-Public Use
  Company Number: US-ROCHE-1361289

PATIENT
  Age: 46 Year
  Sex: Female
  Weight: 99.88 kg

DRUGS (8)
  1. XOLAIR [Suspect]
     Indication: ASTHMA
     Route: 058
     Dates: start: 20040705
  2. XOLAIR [Suspect]
     Route: 065
     Dates: start: 2011
  3. XOLAIR [Suspect]
     Route: 065
  4. XOLAIR [Suspect]
     Route: 058
     Dates: end: 201102
  5. ALBUTEROL SULFATE [Concomitant]
     Dosage: AS NEEDED FOR ABOUT 40 YEARS
     Route: 065
  6. VENTOLIN [Concomitant]
     Dosage: AS NEEDED
     Route: 055
     Dates: start: 201402
  7. ADVAIR [Concomitant]
     Indication: ASTHMA
     Dosage: AT LEAST 18 YEARS
     Route: 055
  8. PROAIR (UNITED STATES) [Concomitant]
     Route: 055

REACTIONS (6)
  - Asthma [Recovered/Resolved]
  - Malaise [Recovered/Resolved]
  - Drug administration error [Unknown]
  - Incorrect dose administered [Unknown]
  - Fatigue [Recovered/Resolved]
  - Nasopharyngitis [Unknown]
